FAERS Safety Report 6371304-0 (Version None)
Quarter: 2009Q3

REPORT INFORMATION
  Report Type: 
  Country: None (occurrence: None)
  Receive Date: 20090918
  Receipt Date: 20090907
  Transmission Date: 20100115
  Serious: Yes (Disabling)
  Sender: FDA-Public Use
  Company Number: 8051974

PATIENT
  Age: 64 Year
  Sex: Male

DRUGS (8)
  1. KEPPRA [Suspect]
     Indication: EPILEPSY
     Dosage: 500 MG 6/D PO
     Route: 048
  2. VALPROATE SODIUM [Suspect]
     Indication: EPILEPSY
     Dosage: 1750 MG /D PO
     Route: 048
     Dates: start: 20070101, end: 20070601
  3. CARBAMAZEPINE [Suspect]
     Indication: EPILEPSY
     Dosage: 400 MG 3/D PO
     Route: 048
     Dates: start: 20080601, end: 20081001
  4. DEPAKINE CHRONO /01294701/ [Concomitant]
  5. TEGRETOL [Concomitant]
  6. KERLONE /00706301/ [Concomitant]
  7. TAHOR [Concomitant]
  8. RIVOTRIL [Concomitant]

REACTIONS (2)
  - DIARRHOEA [None]
  - ILL-DEFINED DISORDER [None]
